FAERS Safety Report 7699399-2 (Version None)
Quarter: 2011Q3

REPORT INFORMATION
  Report Type: 
  Country: None (occurrence: None)
  Receive Date: 20110819
  Receipt Date: 20110810
  Transmission Date: 20111222
  Serious: Yes (Hospitalization)
  Sender: FDA-Public Use
  Company Number: US-ASTRAZENECA-2011SE48109

PATIENT
  Age: 21 Day
  Sex: Male
  Weight: 2.2 kg

DRUGS (2)
  1. BUPIVACAINE HCL [Suspect]
     Indication: CIRCUMCISION
     Route: 053
  2. BUPIVACAINE HCL [Suspect]
     Route: 053

REACTIONS (7)
  - OVERDOSE [None]
  - STRABISMUS [None]
  - GAZE PALSY [None]
  - HYPOTONIA [None]
  - SOMNOLENCE [None]
  - ALTERED STATE OF CONSCIOUSNESS [None]
  - LETHARGY [None]
